FAERS Safety Report 23284655 (Version 3)
Quarter: 2024Q1

REPORT INFORMATION
  Report Type: Spontaneous
  Country: US (occurrence: US)
  Receive Date: 20231211
  Receipt Date: 20240306
  Transmission Date: 20240409
  Serious: Yes (Other)
  Sender: FDA-Public Use
  Company Number: US-Calliditas-2023CAL01567

PATIENT
  Age: 32 Year
  Sex: Female

DRUGS (5)
  1. TARPEYO [Suspect]
     Active Substance: BUDESONIDE
     Indication: IgA nephropathy
     Dosage: 16 MG (4 MG CAPSULES) ONCE DAILY
     Route: 048
     Dates: start: 20231107
  2. LOSARTAN [Concomitant]
     Active Substance: LOSARTAN
  3. RYBELSUS [Suspect]
     Active Substance: SEMAGLUTIDE
     Indication: Proteinuria
     Dates: start: 202311
  4. PANTOPRAZOLE [Concomitant]
     Active Substance: PANTOPRAZOLE
  5. DESOGESTREL\ETHINYL ESTRADIOL [Suspect]
     Active Substance: DESOGESTREL\ETHINYL ESTRADIOL
     Indication: Ovarian cyst

REACTIONS (17)
  - Nausea [Unknown]
  - Vomiting [Not Recovered/Not Resolved]
  - Abdominal distension [Unknown]
  - Anxiety [Unknown]
  - Dyspnoea [Unknown]
  - Insomnia [Unknown]
  - Increased appetite [Recovered/Resolved]
  - Constipation [Unknown]
  - Prescribed underdose [Unknown]
  - Gastrooesophageal reflux disease [Unknown]
  - Haematemesis [Unknown]
  - Decreased appetite [Unknown]
  - Weight decreased [Unknown]
  - Urinary tract infection [Unknown]
  - Ovarian cyst [Unknown]
  - Blood creatinine increased [Unknown]
  - Galactorrhoea [Unknown]
